FAERS Safety Report 8077542-3 (Version None)
Quarter: 2012Q1

REPORT INFORMATION
  Report Type: 
  Country: None (occurrence: None)
  Receive Date: 20120127
  Receipt Date: 20120120
  Transmission Date: 20120608
  Serious: Yes (Other)
  Sender: FDA-Public Use
  Company Number: US-US-EMD SERONO, INC.-7091590

PATIENT
  Sex: Female
  Weight: 100 kg

DRUGS (3)
  1. GABAPENTIN [Concomitant]
     Indication: PAIN
  2. KLONOPIN [Concomitant]
  3. REBIF [Suspect]
     Indication: MULTIPLE SCLEROSIS
     Route: 058
     Dates: start: 20070717

REACTIONS (6)
  - DIABETES MELLITUS [None]
  - INFLUENZA [None]
  - ANXIETY [None]
  - INCONTINENCE [None]
  - INTERVERTEBRAL DISC PROTRUSION [None]
  - BLOOD CHOLESTEROL INCREASED [None]
